FAERS Safety Report 11453889 (Version 1)
Quarter: 2015Q3

REPORT INFORMATION
  Report Type: Spontaneous
  Country: AU (occurrence: AU)
  Receive Date: 20150903
  Receipt Date: 20150903
  Transmission Date: 20151125
  Serious: Yes (Hospitalization, Other)
  Sender: FDA-Public Use
  Company Number: PHHY2015AU104793

PATIENT
  Age: 69 Year
  Sex: Male

DRUGS (1)
  1. EVEROLIMUS [Suspect]
     Active Substance: EVEROLIMUS
     Indication: METASTATIC RENAL CELL CARCINOMA
     Dosage: 10 MG, DAILY
     Route: 065
     Dates: start: 2015, end: 20150511

REACTIONS (23)
  - Lower respiratory tract infection [Unknown]
  - Bronchiectasis [Unknown]
  - Dyspnoea exertional [Unknown]
  - Metastases to peritoneum [Unknown]
  - Productive cough [Unknown]
  - Blood creatine increased [Unknown]
  - Blood lactate dehydrogenase increased [Unknown]
  - Anaemia [Unknown]
  - Interstitial lung disease [Unknown]
  - Oxygen saturation decreased [Recovering/Resolving]
  - Lymphadenopathy [Unknown]
  - Liver function test abnormal [Unknown]
  - Respiratory failure [Unknown]
  - Nasal congestion [Unknown]
  - Stomatitis [Unknown]
  - Fatigue [Unknown]
  - Dyspnoea [Unknown]
  - Pneumonitis [Unknown]
  - Metastases to muscle [Unknown]
  - Decreased appetite [Unknown]
  - Haemoglobin decreased [Unknown]
  - Abdominal pain upper [Unknown]
  - Acute myocardial infarction [Unknown]

NARRATIVE: CASE EVENT DATE: 201505
